FAERS Safety Report 8269741-2 (Version None)
Quarter: 2012Q2

REPORT INFORMATION
  Report Type: 
  Country: None (occurrence: None)
  Receive Date: 20120406
  Receipt Date: 20120327
  Transmission Date: 20120825
  Serious: Yes (Hospitalization)
  Sender: FDA-Public Use
  Company Number: DSU-2012-02493

PATIENT
  Age: 73 Year
  Sex: Female

DRUGS (1)
  1. BENICAR [Suspect]
     Indication: PRODUCT USED FOR UNKNOWN INDICATION
     Dosage: 20 MG (20 MG,QD),PER ORAL
     Route: 048

REACTIONS (3)
  - HYPERSENSITIVITY [None]
  - CHEST DISCOMFORT [None]
  - DYSPHONIA [None]
